FAERS Safety Report 4809024-3 (Version None)
Quarter: 2005Q4

REPORT INFORMATION
  Report Type: 
  Country: None (occurrence: None)
  Receive Date: 20051021
  Receipt Date: 20040204
  Transmission Date: 20060501
  Serious: Yes (Life-Threatening)
  Sender: FDA-Public Use
  Company Number: GBS040214395

PATIENT
  Age: 27 Year
  Sex: Male

DRUGS (2)
  1. OLANZAPINE [Suspect]
     Dosage: 20 MG
     Route: 048
     Dates: start: 20010101, end: 20040101
  2. VENLAFAXINE [Concomitant]

REACTIONS (1)
  - NEUTROPENIA [None]
